FAERS Safety Report 6646215-3 (Version None)
Quarter: 2010Q1

REPORT INFORMATION
  Report Type: 
  Country: None (occurrence: None)
  Receive Date: 20100323
  Receipt Date: 20100312
  Transmission Date: 20100710
  Serious: Yes (Hospitalization)
  Sender: FDA-Public Use
  Company Number: JP-ROCHE-689220

PATIENT
  Sex: Male
  Weight: 53 kg

DRUGS (3)
  1. AVASTIN [Suspect]
     Indication: LARGE CELL LUNG CANCER RECURRENT
     Dosage: FORM REPORTED AS INJECTION
     Route: 041
     Dates: start: 20100224, end: 20100224
  2. CARBOPLATIN [Suspect]
     Indication: LARGE CELL LUNG CANCER RECURRENT
     Dosage: FORM REPORTED AS INJECTION.
     Route: 041
     Dates: start: 20100224, end: 20100224
  3. ALIMTA [Concomitant]
     Dosage: FORM:INJECTION
     Route: 041
     Dates: start: 20100224, end: 20100224

REACTIONS (2)
  - BONE MARROW FAILURE [None]
  - BRONCHIAL FISTULA [None]
